FAERS Safety Report 6387730-X (Version None)
Quarter: 2009Q3

REPORT INFORMATION
  Report Type: 
  Country: None (occurrence: None)
  Receive Date: 20090930
  Receipt Date: 20090915
  Transmission Date: 20100115
  Serious: Yes (Hospitalization)
  Sender: FDA-Public Use
  Company Number: GXBR2009US01874

PATIENT
  Age: 86 Year
  Sex: Male

DRUGS (4)
  1. RIFAMPIN [Suspect]
     Indication: TUBERCULOSIS
     Dosage: , ORAL
     Route: 048
     Dates: start: 20090716
  2. ISONIAZID [Suspect]
     Indication: TUBERCULOSIS
     Dosage: ,ORAL
     Route: 048
     Dates: start: 20090716
  3. PYRAZINAMIDE [Suspect]
     Indication: TUBERCULOSIS
     Dosage: , ORAL
     Route: 048
     Dates: start: 20090716
  4. ETHAMBUTOL (ETHAMBUTOL) [Suspect]
     Indication: TUBERCULOSIS
     Dosage: , ORAL
     Route: 048
     Dates: start: 20090716

REACTIONS (9)
  - ACUTE MYOCARDIAL INFARCTION [None]
  - DYSPNOEA [None]
  - HYPOTENSION [None]
  - MYOCARDIAL INFARCTION [None]
  - PNEUMONITIS [None]
  - PULMONARY FIBROSIS [None]
  - SEPSIS [None]
  - STAPHYLOCOCCAL INFECTION [None]
  - SYSTEMIC INFLAMMATORY RESPONSE SYNDROME [None]
